FAERS Safety Report 25423087 (Version 1)
Quarter: 2025Q2

REPORT INFORMATION
  Report Type: Spontaneous
  Country: US (occurrence: US)
  Receive Date: 20250611
  Receipt Date: 20250611
  Transmission Date: 20250717
  Serious: Yes (Other)
  Sender: PFIZER
  Company Number: US-PFIZER INC-202400302392

PATIENT
  Age: 57 Year
  Sex: Male

DRUGS (4)
  1. INLYTA [Suspect]
     Active Substance: AXITINIB
     Dosage: 3 MG, 2X/DAY (1MG, TAKE 3 TABLETS PO TWICE DAILY)
     Route: 048
  2. INLYTA [Suspect]
     Active Substance: AXITINIB
  3. INLYTA [Suspect]
     Active Substance: AXITINIB
     Dosage: 3 MG, DAILY (1MG; 3 TABLETS DAILY)
  4. INLYTA [Suspect]
     Active Substance: AXITINIB
     Dosage: 3 MG, 2X/DAY (1 MG - TAKE 3 TABLETS TWICE A DAY WITH OR WITHOUT FOOD AND WITH A FULL GLASS OF WATER)

REACTIONS (2)
  - Malignant neoplasm progression [Unknown]
  - Off label use [Unknown]
